FAERS Safety Report 13287967 (Version 4)
Quarter: 2018Q3

REPORT INFORMATION
  Report Type: Spontaneous
  Country: CA (occurrence: CA)
  Receive Date: 20170302
  Receipt Date: 20180911
  Transmission Date: 20181010
  Serious: Yes (Death, Other)
  Sender: FDA-Public Use
  Company Number: CA-BAXTER-2017BAX008931

PATIENT
  Sex: Female

DRUGS (46)
  1. PROCYTOX (CYCLOPHOSPHAMIDE) 2000MG/VIAL [Suspect]
     Active Substance: CYCLOPHOSPHAMIDE
     Indication: METASTASES TO CENTRAL NERVOUS SYSTEM
  2. ETOPOSIDE. [Suspect]
     Active Substance: ETOPOSIDE
     Indication: CHORIOCARCINOMA
     Dosage: EMA?CO REGIMEN. 6 CYCLES
     Route: 065
  3. ETOPOSIDE. [Suspect]
     Active Substance: ETOPOSIDE
     Indication: METASTASES TO LUNG
     Dosage: EMA?CE REGIMEN. 4 CYCLES
     Route: 065
  4. METHOTREXATE SODIUM. [Suspect]
     Active Substance: METHOTREXATE SODIUM
     Indication: METASTASES TO CENTRAL NERVOUS SYSTEM
  5. VINCRISTINE SULFATE. [Suspect]
     Active Substance: VINCRISTINE SULFATE
     Indication: METASTASES TO LUNG
  6. VINCRISTINE SULFATE. [Suspect]
     Active Substance: VINCRISTINE SULFATE
     Indication: METASTASES TO CENTRAL NERVOUS SYSTEM
  7. TAXOL [Suspect]
     Active Substance: PACLITAXEL
     Indication: CHORIOCARCINOMA
     Dosage: DOSAGE FORM SOLUTION INTRAVENOUS?4 CYCLES
     Route: 065
  8. PROCYTOX (CYCLOPHOSPHAMIDE) 2000MG/VIAL [Suspect]
     Active Substance: CYCLOPHOSPHAMIDE
     Indication: METASTASES TO SKIN
  9. VINCRISTINE SULFATE. [Suspect]
     Active Substance: VINCRISTINE SULFATE
     Indication: CHORIOCARCINOMA
     Dosage: EMA?CO REGIMEN. 6 CYCLES
     Route: 065
  10. VINCRISTINE SULFATE. [Suspect]
     Active Substance: VINCRISTINE SULFATE
     Indication: METASTASES TO SKIN
  11. PEGYLATED LIPOSOMAL DOXORUBICIN HYDROCHLORIDE [Suspect]
     Active Substance: DOXORUBICIN HYDROCHLORIDE
     Indication: RECURRENT CANCER
  12. ETOPOSIDE. [Suspect]
     Active Substance: ETOPOSIDE
     Indication: METASTASES TO CENTRAL NERVOUS SYSTEM
  13. DACTINOMYCIN [Suspect]
     Active Substance: DACTINOMYCIN
     Indication: METASTASES TO CENTRAL NERVOUS SYSTEM
  14. CISPLATIN. [Suspect]
     Active Substance: CISPLATIN
     Indication: METASTASES TO SKIN
  15. HERCEPTIN [Suspect]
     Active Substance: TRASTUZUMAB
     Indication: INVASIVE DUCTAL BREAST CARCINOMA
     Dosage: 7 CYCLES
     Route: 065
  16. PROCYTOX (CYCLOPHOSPHAMIDE) 2000MG/VIAL [Suspect]
     Active Substance: CYCLOPHOSPHAMIDE
     Indication: METASTASES TO LUNG
  17. METHOTREXATE SODIUM. [Suspect]
     Active Substance: METHOTREXATE SODIUM
     Indication: METASTASES TO SKIN
  18. METHOTREXATE SODIUM. [Suspect]
     Active Substance: METHOTREXATE SODIUM
     Indication: RECURRENT CANCER
  19. DACTINOMYCIN [Suspect]
     Active Substance: DACTINOMYCIN
     Indication: CHORIOCARCINOMA
  20. CISPLATIN. [Suspect]
     Active Substance: CISPLATIN
     Indication: METASTASES TO CENTRAL NERVOUS SYSTEM
  21. CISPLATIN. [Suspect]
     Active Substance: CISPLATIN
     Indication: CHEMOTHERAPY
  22. CISPLATIN. [Suspect]
     Active Substance: CISPLATIN
     Indication: RECURRENT CANCER
  23. ETOPOSIDE. [Suspect]
     Active Substance: ETOPOSIDE
     Indication: METASTASES TO SKIN
  24. ETOPOSIDE. [Suspect]
     Active Substance: ETOPOSIDE
     Indication: RECURRENT CANCER
  25. METHOTREXATE SODIUM. [Suspect]
     Active Substance: METHOTREXATE SODIUM
     Indication: METASTASES TO LUNG
     Dosage: EMA?CE REGIMEN. 4 CYCLES
     Route: 065
  26. METHOTREXATE SODIUM. [Suspect]
     Active Substance: METHOTREXATE SODIUM
     Indication: CHEMOTHERAPY
  27. DACTINOMYCIN [Suspect]
     Active Substance: DACTINOMYCIN
     Indication: METASTASES TO LUNG
     Dosage: EMA?CE REGIMEN. 4 CYCLES
     Route: 065
  28. CISPLATIN. [Suspect]
     Active Substance: CISPLATIN
     Indication: METASTASES TO LUNG
  29. ADRIAMYCIN [Suspect]
     Active Substance: DOXORUBICIN HYDROCHLORIDE
     Indication: INVASIVE DUCTAL BREAST CARCINOMA
     Dosage: DOSAGE FORM SOLUTION INTRAVENOUS?AT CHEMOTHERAPY 2 CYCLES
     Route: 065
  30. GEMCITABINE HYDROCHLORIDE. [Suspect]
     Active Substance: GEMCITABINE HYDROCHLORIDE
     Indication: RECURRENT CANCER
     Dosage: DOSAGE FORM: NOT SPECIFIED
     Route: 065
  31. PROCYTOX (CYCLOPHOSPHAMIDE) 2000MG/VIAL [Suspect]
     Active Substance: CYCLOPHOSPHAMIDE
     Indication: CHORIOCARCINOMA
     Dosage: 6 CYCLES
     Route: 065
  32. METHOTREXATE SODIUM. [Suspect]
     Active Substance: METHOTREXATE SODIUM
     Indication: CHORIOCARCINOMA
  33. DACTINOMYCIN [Suspect]
     Active Substance: DACTINOMYCIN
     Indication: CHORIOCARCINOMA
     Dosage: EMA?CO REGIMEN. 6 CYCLES
     Route: 065
  34. DACTINOMYCIN [Suspect]
     Active Substance: DACTINOMYCIN
     Indication: CHEMOTHERAPY
  35. DACTINOMYCIN [Suspect]
     Active Substance: DACTINOMYCIN
     Indication: RECURRENT CANCER
  36. CISPLATIN. [Suspect]
     Active Substance: CISPLATIN
     Indication: CHORIOCARCINOMA
     Dosage: 4 CYCLES? EMA? CE REGIMEN
     Route: 065
  37. CISPLATIN. [Suspect]
     Active Substance: CISPLATIN
     Indication: CHORIOCARCINOMA
  38. TAXOL [Suspect]
     Active Substance: PACLITAXEL
     Indication: RECURRENT CANCER
     Dosage: DOSAGE FORM SOLUTION INTRAVENOUS
     Route: 065
  39. GEMCITABINE HYDROCHLORIDE. [Suspect]
     Active Substance: GEMCITABINE HYDROCHLORIDE
     Indication: CHORIOCARCINOMA
     Dosage: DOSAGE FORM: NOT SPECIFIED?3 CYCLES
     Route: 065
  40. PEGYLATED LIPOSOMAL DOXORUBICIN HYDROCHLORIDE [Suspect]
     Active Substance: DOXORUBICIN HYDROCHLORIDE
     Indication: CHORIOCARCINOMA
     Dosage: 6 CYCLES
     Route: 065
  41. PROCYTOX (CYCLOPHOSPHAMIDE) 2000MG/VIAL [Suspect]
     Active Substance: CYCLOPHOSPHAMIDE
     Indication: CHEMOTHERAPY
  42. ETOPOSIDE. [Suspect]
     Active Substance: ETOPOSIDE
     Indication: CHORIOCARCINOMA
  43. METHOTREXATE SODIUM. [Suspect]
     Active Substance: METHOTREXATE SODIUM
     Indication: CHORIOCARCINOMA
     Dosage: EMA?CO REGIMEN. 6 CYCLES
     Route: 065
  44. DACTINOMYCIN [Suspect]
     Active Substance: DACTINOMYCIN
     Indication: METASTASES TO SKIN
  45. VINCRISTINE SULFATE. [Suspect]
     Active Substance: VINCRISTINE SULFATE
     Indication: CHEMOTHERAPY
  46. TAXOTERE [Suspect]
     Active Substance: DOCETAXEL
     Indication: INVASIVE DUCTAL BREAST CARCINOMA
     Dosage: DOSAGE FORM SOLUTION INTRAVENOUS?AT CHEMOTHERAPY 6 CYCLES
     Route: 065

REACTIONS (1)
  - Acute myeloid leukaemia [Fatal]
